FAERS Safety Report 23909135 (Version 1)
Quarter: 2024Q2

REPORT INFORMATION
  Report Type: Spontaneous
  Country: US (occurrence: None)
  Receive Date: 20240525
  Receipt Date: 20240525
  Transmission Date: 20240716
  Serious: No
  Sender: FDA-Public Use
  Company Number: None

PATIENT
  Age: 67 Year
  Sex: Female
  Weight: 54 kg

DRUGS (17)
  1. PAXLOVID [Suspect]
     Active Substance: NIRMATRELVIR\RITONAVIR
     Indication: COVID-19
     Dosage: 3 TABLETS TWICE A DAY ORAL
     Route: 048
     Dates: start: 20240520, end: 20240523
  2. BIOIDENTICAL HORMONES [Concomitant]
  3. MOUTH GUARD [Concomitant]
  4. CAFFEINE [Concomitant]
     Active Substance: CAFFEINE
  5. ZYRTEC [Concomitant]
     Active Substance: CETIRIZINE HYDROCHLORIDE
  6. MULTIVITAMIN FOR WOMEN OVER 50 [Concomitant]
  7. CALCIUM [Concomitant]
     Active Substance: CALCIUM
  8. COENZYME Q10 [Concomitant]
     Active Substance: DIETARY SUPPLEMENT\UBIDECARENONE
  9. DIM [Concomitant]
  10. A-D-K VITAMIN [Concomitant]
  11. MAGNESIUM [Concomitant]
     Active Substance: MAGNESIUM
  12. VITAMIN B12 [Concomitant]
     Active Substance: CYANOCOBALAMIN
  13. CHARLOTTE^S WEB CBD OIL [Concomitant]
  14. IBUPROFEN [Concomitant]
     Active Substance: IBUPROFEN
  15. SUDAFED SINUS CONGESTION [Concomitant]
     Active Substance: PSEUDOEPHEDRINE HYDROCHLORIDE
  16. AIRBORNE IMMUNE SUPPORT [Concomitant]
  17. ZINC LOZENGE [Concomitant]

REACTIONS (6)
  - Asthenia [None]
  - Illness [None]
  - Therapy cessation [None]
  - Apathy [None]
  - Cognitive disorder [None]
  - Depression [None]

NARRATIVE: CASE EVENT DATE: 20240522
